FAERS Safety Report 6079187-3 (Version None)
Quarter: 2009Q1

REPORT INFORMATION
  Report Type: 
  Country: None (occurrence: None)
  Receive Date: 20090216
  Receipt Date: 20090209
  Transmission Date: 20090719
  Serious: Yes (Other)
  Sender: FDA-Public Use
  Company Number: B0558242A

PATIENT
  Age: 73 Year
  Sex: Female

DRUGS (4)
  1. RANITIDINE [Suspect]
     Dosage: 300MG PER DAY
     Route: 048
  2. BENDROFLUAZIDE [Concomitant]
     Dosage: 2.5MG PER DAY
  3. ASPIRIN [Concomitant]
     Dosage: 7MG PER DAY
  4. ATORVASTATIN [Concomitant]
     Dosage: 20MG PER DAY

REACTIONS (4)
  - DYSPEPSIA [None]
  - ERUCTATION [None]
  - FOOD AVERSION [None]
  - NAUSEA [None]
